FAERS Safety Report 6107879-6 (Version None)
Quarter: 2009Q1

REPORT INFORMATION
  Report Type: 
  Country: None (occurrence: None)
  Receive Date: 20090305
  Receipt Date: 20090305
  Transmission Date: 20090719
  Serious: Yes (Life-Threatening, Other)
  Sender: FDA-Public Use
  Company Number: None

PATIENT
  Age: 31 Year
  Sex: Female
  Weight: 66.6788 kg

DRUGS (1)
  1. CEFPROZIL [Suspect]
     Indication: PHARYNGITIS STREPTOCOCCAL
     Dosage: 1 TAB B.I.D PO
     Route: 048
     Dates: start: 20090227, end: 20090303

REACTIONS (1)
  - GRAND MAL CONVULSION [None]
